FAERS Safety Report 10528151 (Version 1)
Quarter: 2014Q4

REPORT INFORMATION
  Report Type: Spontaneous
  Country: US (occurrence: None)
  Receive Date: 20141014
  Receipt Date: 20141014
  Transmission Date: 20150528
  Serious: Yes (Hospitalization)
  Sender: FDA-Public Use
  Company Number: US-001312N

PATIENT
  Age: 63 Year
  Sex: Female

DRUGS (3)
  1. DIUTRETICS [Concomitant]
  2. GATTEX [Suspect]
     Active Substance: TEDUGLUTIDE\WATER
     Indication: SHORT-BOWEL SYNDROME
     Dosage: DF
     Route: 058
  3. SOLUTIONS FOR PARENTERAL NUTRITION [Concomitant]
     Active Substance: AMINO ACIDS\DEXTROSE\ELECTROLYTES NOS

REACTIONS (7)
  - Blood pressure abnormal [None]
  - Gastrointestinal stoma complication [None]
  - Incorrect dose administered [None]
  - Pain [None]
  - No therapeutic response [None]
  - Surgery [None]
  - Thrombosis in device [None]

NARRATIVE: CASE EVENT DATE: 201409
